FAERS Safety Report 5373553-7 (Version None)
Quarter: 2007Q2

REPORT INFORMATION
  Report Type: 
  Country: None (occurrence: None)
  Receive Date: 20070628
  Receipt Date: 20070625
  Transmission Date: 20071010
  Serious: Yes (Other)
  Sender: FDA-Public Use
  Company Number: B0476899A

PATIENT
  Age: 58 Year
  Sex: Male

DRUGS (7)
  1. REQUIP [Suspect]
     Indication: PARKINSON'S DISEASE
     Dosage: .25MG FOUR TIMES PER DAY
     Route: 048
     Dates: start: 20070602
  2. SINEMET [Concomitant]
     Route: 065
  3. AKINETON [Concomitant]
     Route: 065
  4. AMANTADINE HCL [Concomitant]
     Route: 065
  5. GLUCOPHAGE [Concomitant]
     Route: 065
  6. ISTIN [Concomitant]
     Route: 065
  7. ATORVASTATIN [Concomitant]
     Route: 065

REACTIONS (4)
  - FACE OEDEMA [None]
  - HYPERHIDROSIS [None]
  - PERIORBITAL OEDEMA [None]
  - SYNCOPE [None]
